FAERS Safety Report 19823267 (Version 1)
Quarter: 2021Q3

REPORT INFORMATION
  Report Type: Spontaneous
  Country: US (occurrence: US)
  Receive Date: 20210913
  Receipt Date: 20210913
  Transmission Date: 20211014
  Serious: Yes (Hospitalization, Other)
  Sender: FDA-Public Use
  Company Number: US-AMGEN-USASP2021139784

PATIENT
  Age: 32 Year
  Sex: Female

DRUGS (4)
  1. IVABRADINE [Suspect]
     Active Substance: IVABRADINE
     Indication: SINUS TACHYCARDIA
     Dosage: UNK
     Route: 065
     Dates: start: 2020
  2. IVABRADINE [Suspect]
     Active Substance: IVABRADINE
     Indication: POSTURAL ORTHOSTATIC TACHYCARDIA SYNDROME
     Dosage: DOSE REDUCED
     Route: 065
     Dates: start: 2020
  3. IVABRADINE [Suspect]
     Active Substance: IVABRADINE
     Indication: OFF LABEL USE
  4. METOPROLOL. [Concomitant]
     Active Substance: METOPROLOL
     Indication: POSTURAL ORTHOSTATIC TACHYCARDIA SYNDROME
     Dosage: UNK
     Dates: start: 2020

REACTIONS (7)
  - Vision blurred [Unknown]
  - Off label use [Unknown]
  - Atrioventricular block second degree [Recovering/Resolving]
  - Treatment noncompliance [Unknown]
  - COVID-19 [Recovering/Resolving]
  - Bradycardia [Recovering/Resolving]
  - Drug effective for unapproved indication [Unknown]

NARRATIVE: CASE EVENT DATE: 2020
